FAERS Safety Report 5097897-1 (Version None)
Quarter: 2006Q3

REPORT INFORMATION
  Report Type: 
  Country: None (occurrence: None)
  Receive Date: 20060905
  Receipt Date: 20060905
  Transmission Date: 20061208
  Serious: Yes (Hospitalization)
  Sender: FDA-Public Use
  Company Number: None

PATIENT
  Sex: Female
  Weight: 81 kg

DRUGS (2)
  1. TAXOTERE [Suspect]
     Indication: BREAST CANCER FEMALE
     Dosage: 45 MG/M2 EVERY 3 WEEKS IV
     Route: 042
     Dates: start: 20050630, end: 20060530
  2. HERCEPTIN [Suspect]
     Indication: BREAST CANCER FEMALE
     Dosage: 6 MG/KG EVERY 3 WEEKS IV
     Route: 042
     Dates: start: 20050630, end: 20060530

REACTIONS (4)
  - ABDOMINAL PAIN [None]
  - DIARRHOEA [None]
  - PYREXIA [None]
  - TREATMENT NONCOMPLIANCE [None]
